FAERS Safety Report 11428559 (Version 1)
Quarter: 2015Q3

REPORT INFORMATION
  Report Type: Spontaneous
  Country: US (occurrence: US)
  Receive Date: 20150828
  Receipt Date: 20150828
  Transmission Date: 20151125
  Serious: No
  Sender: FDA-Public Use
  Company Number: US-ROCHE-1222127

PATIENT
  Sex: Female

DRUGS (4)
  1. RIBASPHERE RIBAPAK [Suspect]
     Active Substance: RIBAVIRIN
     Route: 048
     Dates: start: 20130318
  2. TELAPREVIR [Suspect]
     Active Substance: TELAPREVIR
     Indication: CHRONIC HEPATITIS C
     Route: 065
     Dates: start: 20130201, end: 20130503
  3. PEGASYS [Suspect]
     Active Substance: PEGINTERFERON ALFA-2A
     Indication: CHRONIC HEPATITIS C
     Route: 058
     Dates: start: 20130201
  4. RIBASPHERE RIBAPAK [Suspect]
     Active Substance: RIBAVIRIN
     Indication: CHRONIC HEPATITIS C
     Dosage: DIVIDED DOSES
     Route: 048
     Dates: start: 20130201

REACTIONS (11)
  - Anaemia [Recovering/Resolving]
  - Chills [Unknown]
  - Bronchitis [Recovered/Resolved]
  - Somnolence [Unknown]
  - Fatigue [Recovering/Resolving]
  - Injection site haemorrhage [Unknown]
  - Epistaxis [Unknown]
  - Insomnia [Recovering/Resolving]
  - Pyrexia [Unknown]
  - Decreased appetite [Recovering/Resolving]
  - Productive cough [Unknown]
